FAERS Safety Report 8200465-3 (Version None)
Quarter: 2012Q1

REPORT INFORMATION
  Report Type: 
  Country: None (occurrence: None)
  Receive Date: 20120309
  Receipt Date: 20120309
  Transmission Date: 20120608
  Serious: Yes (Disabling)
  Sender: FDA-Public Use
  Company Number: None

PATIENT
  Sex: Male
  Weight: 79 kg

DRUGS (2)
  1. PRADAXA [Suspect]
     Indication: ATRIAL FIBRILLATION
     Dosage: 75MG EVERY 12 HOURS ORAL
     Route: 048
     Dates: start: 20111108, end: 20120112
  2. ASPIRIN [Suspect]
     Indication: ISCHAEMIC STROKE
     Dosage: 81MG ONCE DAILY ORAL
     Route: 048
     Dates: start: 20111102, end: 20120112

REACTIONS (3)
  - GAIT DISTURBANCE [None]
  - SUBDURAL HAEMORRHAGE [None]
  - SUBDURAL HAEMATOMA [None]
